FAERS Safety Report 18322342 (Version 24)
Quarter: 2022Q3

REPORT INFORMATION
  Report Type: Report from Study
  Country: GB (occurrence: GB)
  Receive Date: 20200928
  Receipt Date: 20220830
  Transmission Date: 20221027
  Serious: Yes (Hospitalization, Other)
  Sender: FDA-Public Use
  Company Number: GB-ROCHE-2225270

PATIENT
  Age: 43 Year
  Sex: Female

DRUGS (143)
  1. TRASTUZUMAB [Suspect]
     Active Substance: TRASTUZUMAB
     Indication: HER2 positive breast cancer
     Dosage: 8 MILLIGRAM, Q3W, ((PHARMACEUTICAL DOSE FORM: 293); PAIN FROM METASTASES
     Route: 042
     Dates: start: 20171108
  2. TRASTUZUMAB [Suspect]
     Active Substance: TRASTUZUMAB
     Indication: Breast cancer metastatic
     Dosage: 8 MILLIGRAM, Q3W
     Route: 041
     Dates: start: 20171108
  3. TRASTUZUMAB [Suspect]
     Active Substance: TRASTUZUMAB
     Dosage: 882 MILLIGRAM
     Route: 042
     Dates: start: 20171108, end: 20171129
  4. TRASTUZUMAB [Suspect]
     Active Substance: TRASTUZUMAB
     Dosage: 8 MILLIGRAM, Q3W,(PAIN FROM METASTASES)
     Route: 042
     Dates: start: 20171129
  5. TRASTUZUMAB [Suspect]
     Active Substance: TRASTUZUMAB
     Dosage: 651 MILLIGRAM, Q3W
     Route: 042
     Dates: start: 20171129, end: 20210903
  6. TRASTUZUMAB [Suspect]
     Active Substance: TRASTUZUMAB
     Dosage: 8 MILLIGRAM, Q3W, (PAIN FROM METASTASES)
     Route: 042
     Dates: start: 20211015
  7. TRASTUZUMAB [Suspect]
     Active Substance: TRASTUZUMAB
     Dosage: 600 MILLIGRAM, Q3W
     Route: 058
     Dates: start: 20211015
  8. TRASTUZUMAB [Suspect]
     Active Substance: TRASTUZUMAB
     Dosage: UNK
     Route: 065
  9. TRASTUZUMAB [Suspect]
     Active Substance: TRASTUZUMAB
     Dosage: UNK, PAIN FROM METASTASES
     Route: 065
  10. TRASTUZUMAB [Suspect]
     Active Substance: TRASTUZUMAB
     Dosage: UNK(PHARMACEUTICAL DOSE FORM: 293; PAIN FROM METASTASES)
     Route: 065
  11. TRASTUZUMAB [Suspect]
     Active Substance: TRASTUZUMAB
     Dosage: 8 MILLIGRAM, Q3W(8 MG, Q3W, INFUSION, SOLUTION; PAIN FROM METASTASES (DOSE FORM: 293)
     Route: 042
     Dates: start: 20171108
  12. TRASTUZUMAB [Suspect]
     Active Substance: TRASTUZUMAB
     Dosage: 8 MILLIGRAM, Q3W(8 MILLIGRAM, Q3WK (PHARMACEUTICAL DOSE FORM: 293); PAIN FROM METASTASES)
     Route: 041
     Dates: start: 20171108
  13. DOCETAXEL [Suspect]
     Active Substance: DOCETAXEL
     Indication: HER2 positive breast cancer
     Dosage: 148 MILLIGRAM, Q3W(148 MG, Q3W)
     Route: 042
     Dates: start: 20171108, end: 20180131
  14. DOCETAXEL [Suspect]
     Active Substance: DOCETAXEL
     Indication: Breast cancer metastatic
     Dosage: 148 MILLIGRAM, Q3W
     Route: 042
     Dates: start: 20171108, end: 20180131
  15. DOCETAXEL [Suspect]
     Active Substance: DOCETAXEL
     Dosage: 592 MILLIGRAM
     Route: 042
  16. DOCETAXEL [Suspect]
     Active Substance: DOCETAXEL
     Dosage: 592 MILLIGRAM; PAIN FROM METASTASES
     Route: 065
  17. DOCETAXEL [Suspect]
     Active Substance: DOCETAXEL
     Dosage: UNK
     Route: 065
  18. DOCETAXEL [Suspect]
     Active Substance: DOCETAXEL
     Dosage: 592 MILLIGRAM
     Route: 065
  19. DOCETAXEL [Suspect]
     Active Substance: DOCETAXEL
     Dosage: 592 MILLIGRAM(592 MILLIGRAM; PAIN FROM METASTASES)
     Route: 042
  20. PERTUZUMAB [Suspect]
     Active Substance: PERTUZUMAB
     Indication: Breast cancer metastatic
     Dosage: 840 MILLIGRAM, Q3W, (PAIN FROM METASTASES)
     Route: 042
     Dates: start: 20171108
  21. PERTUZUMAB [Suspect]
     Active Substance: PERTUZUMAB
     Indication: HER2 positive breast cancer
     Dosage: 420 MILLIGRAM, Q3W
     Route: 042
     Dates: start: 20171129, end: 20210924
  22. PERTUZUMAB [Suspect]
     Active Substance: PERTUZUMAB
     Indication: Cancer pain
     Dosage: 840 MILLIGRAM, Q3W(840 MG, Q3W), START 20-NOV-2018
     Route: 042
  23. PERTUZUMAB [Suspect]
     Active Substance: PERTUZUMAB
     Dosage: UNK(PAIN FROM METASTASES)
     Route: 065
  24. PERTUZUMAB [Suspect]
     Active Substance: PERTUZUMAB
     Dosage: 840 MILLIGRAM, Q3W(840 MILLIGRAM, Q3WK), START 20-NOV-2018
     Route: 042
     Dates: start: 20181120
  25. PERTUZUMAB [Suspect]
     Active Substance: PERTUZUMAB
     Dosage: UNK, DOSE FORM: 230 (PAIN FROM METASTASES)
     Route: 065
  26. PERTUZUMAB [Suspect]
     Active Substance: PERTUZUMAB
     Dosage: 600 MILLIGRAM, Q3W
     Route: 058
     Dates: start: 20211015
  27. PERTUZUMAB [Suspect]
     Active Substance: PERTUZUMAB
     Dosage: 840 MILLIGRAM, Q3W
     Route: 042
     Dates: start: 20171108, end: 20171129
  28. PERTUZUMAB [Suspect]
     Active Substance: PERTUZUMAB
     Dosage: 420 MILLIGRAM(840 MG EVERY 3 WEEKS (PAIN FROM METASTASES))
     Route: 042
     Dates: start: 20171129
  29. PERTUZUMAB [Suspect]
     Active Substance: PERTUZUMAB
     Dosage: 420 MILLIGRAM, Q3W(420 MG EVERY 3 WEEKS (PAIN FROM METASTASES))
     Route: 042
     Dates: start: 20171129
  30. PERTUZUMAB [Suspect]
     Active Substance: PERTUZUMAB
     Dosage: UNK(230)
     Route: 065
  31. HYALURONIDASE (HUMAN RECOMBINANT) [Suspect]
     Active Substance: HYALURONIDASE (HUMAN RECOMBINANT)
     Indication: Breast cancer metastatic
     Dosage: 600 MILLIGRAM, Q3W, START 15-OCT-2021
     Route: 058
  32. SIMVASTATIN [Concomitant]
     Active Substance: SIMVASTATIN
     Indication: Cancer pain
     Dosage: UNK
     Route: 065
  33. SIMVASTATIN [Concomitant]
     Active Substance: SIMVASTATIN
     Dosage: 40 MILLIGRAM, QD(PAIN FROM METASTASES)
     Route: 048
  34. SIMVASTATIN [Concomitant]
     Active Substance: SIMVASTATIN
     Dosage: 40 MILLIGRAM, QD
     Route: 048
  35. RAMIPRIL [Concomitant]
     Active Substance: RAMIPRIL
     Indication: Product used for unknown indication
     Dosage: UNK
     Route: 065
  36. RAMIPRIL [Concomitant]
     Active Substance: RAMIPRIL
     Dosage: 1.25 MILLIGRAM, QD(PAIN FROM METASTASES)
     Route: 048
  37. ONDANSETRON [Concomitant]
     Active Substance: ONDANSETRON
     Indication: Diarrhoea
     Dosage: 4 MILLIGRAM
     Route: 042
     Dates: start: 20181002, end: 20181002
  38. ONDANSETRON [Concomitant]
     Active Substance: ONDANSETRON
     Indication: Vomiting
     Dosage: 4 MILLIGRAM, 02-OCT-2018
     Route: 065
     Dates: end: 20181102
  39. ONDANSETRON [Concomitant]
     Active Substance: ONDANSETRON
     Dosage: 4 MILLIGRAM(PAIN FROM METASTASES), START 02-OCT-2018
     Route: 065
     Dates: end: 20181002
  40. ONDANSETRON [Concomitant]
     Active Substance: ONDANSETRON
     Dosage: 4 MILLIGRAM, START 01-OCT-2018
     Route: 042
     Dates: end: 20181002
  41. ONDANSETRON [Concomitant]
     Active Substance: ONDANSETRON
     Dosage: 40 MILLIGRAM, QD
     Route: 048
     Dates: start: 201710
  42. METFORMIN [Concomitant]
     Active Substance: METFORMIN HYDROCHLORIDE
     Indication: Product used for unknown indication
     Dosage: 500 MILLIGRAM, QD (PAIN FROM METASTASES)
     Route: 048
  43. METFORMIN [Concomitant]
     Active Substance: METFORMIN HYDROCHLORIDE
     Dosage: 1000 MILLIGRAM, QD (PAIN FROM METASTASES)
     Route: 048
  44. METFORMIN [Concomitant]
     Active Substance: METFORMIN HYDROCHLORIDE
     Dosage: 500 MILLIGRAM, QD(500 MG, QD)
     Route: 048
  45. METFORMIN [Concomitant]
     Active Substance: METFORMIN HYDROCHLORIDE
     Dosage: 5 MILLIGRAM, PAIN FROM METASTASES
     Route: 065
     Dates: end: 20181002
  46. MIRTAZAPINE [Concomitant]
     Active Substance: MIRTAZAPINE
     Indication: Product used for unknown indication
     Dosage: 45 MILLIGRAM, QD(45 MG,QD PAIN FROM METASTASES)
     Route: 048
  47. LINEZOLID [Concomitant]
     Active Substance: LINEZOLID
     Indication: Device related infection
     Dosage: 600 MILLIGRAM, BID (0.5 DAY), START 25-NOV-2019
     Route: 048
     Dates: end: 20191130
  48. LINEZOLID [Concomitant]
     Active Substance: LINEZOLID
     Dosage: UNK
     Route: 065
  49. LINEZOLID [Concomitant]
     Active Substance: LINEZOLID
     Dosage: 600 MILLIGRAM; PAIN FROM METASTASES, START 25-NOV-2019
     Route: 048
     Dates: start: 20191125, end: 20191130
  50. LINEZOLID [Concomitant]
     Active Substance: LINEZOLID
     Dosage: UNK(PAIN FROM METASTASES)
     Route: 065
  51. ALBUTEROL [Concomitant]
     Active Substance: ALBUTEROL
     Indication: Product used for unknown indication
     Dosage: 2 PUFF
     Route: 055
  52. ALBUTEROL [Concomitant]
     Active Substance: ALBUTEROL
     Dosage: 2 PUFF, PRN
     Route: 055
  53. ALBUTEROL [Concomitant]
     Active Substance: ALBUTEROL
     Dosage: 2 DOSE PUFF (PAIN FROM METASTASES)
     Route: 055
  54. ALBUTEROL [Concomitant]
     Active Substance: ALBUTEROL
     Dosage: UNK, PRN(PRN (DOSE 2 PUFF); PAIN FROM METASTASES)
     Route: 055
  55. ALBUTEROL [Concomitant]
     Active Substance: ALBUTEROL
     Dosage: UNK, PRN(PRN (DOSE 2 PUFF)
     Route: 055
  56. SODIUM PICOSULFATE [Concomitant]
     Active Substance: SODIUM PICOSULFATE
     Indication: Constipation
     Dosage: 10 MILLIGRAM, QD (10 MILLIGRAM PER 10 MILLILITRE, QD, PAIN FROM METASTASES)
     Route: 048
  57. SODIUM PICOSULFATE [Concomitant]
     Active Substance: SODIUM PICOSULFATE
     Dosage: 10 MILLIGRAM (DOSE 10 OTHER (10 MG IN 10 ML), QD; PAIN FROM METASTASES)
     Route: 048
  58. SODIUM PICOSULFATE [Concomitant]
     Active Substance: SODIUM PICOSULFATE
     Dosage: UNK, QD
     Route: 048
  59. SODIUM PICOSULFATE [Concomitant]
     Active Substance: SODIUM PICOSULFATE
     Dosage: 10 MILLIGRAM, QD(10 MG, QD)
     Route: 048
  60. SODIUM PICOSULFATE [Concomitant]
     Active Substance: SODIUM PICOSULFATE
     Dosage: UNK DOSE 10 OTHER (10 MG IN 10 ML) PAIN FROM METASTASES)
     Route: 048
  61. SODIUM PICOSULFATE [Concomitant]
     Active Substance: SODIUM PICOSULFATE
     Dosage: UNK
     Route: 048
  62. QUETIAPINE [Concomitant]
     Active Substance: QUETIAPINE
     Indication: Depressed mood
     Dosage: 100 MILLIGRAM, QD(PAIN FROM METASTASES), START 2020
     Route: 048
  63. QUETIAPINE [Concomitant]
     Active Substance: QUETIAPINE
     Dosage: 150 MILLIGRAM, QD(PAIN FROM METASTASES), START 2020
     Route: 048
     Dates: start: 2020
  64. QUETIAPINE [Concomitant]
     Active Substance: QUETIAPINE
     Dosage: UNK UNK, QD(PAIN FROM METASTASES), START 2020
     Route: 048
  65. QUETIAPINE [Concomitant]
     Active Substance: QUETIAPINE
     Dosage: 100 MILLIGRAM, QD((DOSAGE FORM: 245); PAIN FROM METASTASES), START 2020
     Route: 048
  66. QUETIAPINE [Concomitant]
     Active Substance: QUETIAPINE
     Dosage: 100 MILLIGRAM, QD (END DATE : 2020)
     Route: 048
  67. QUETIAPINE [Concomitant]
     Active Substance: QUETIAPINE
     Dosage: 150 MILLIGRAM, QD (END DATE : 2020)
     Route: 048
  68. QUETIAPINE [Concomitant]
     Active Substance: QUETIAPINE
     Dosage: UNK, QD
     Route: 048
     Dates: start: 2020
  69. QUETIAPINE [Concomitant]
     Active Substance: QUETIAPINE
     Dosage: 100 MILLIGRAM, QD(100 MILLIGRAM, QD; PAIN FROM METASTASES)
     Route: 048
     Dates: start: 2020
  70. OXYCODONE [Concomitant]
     Active Substance: OXYCODONE
     Indication: Cancer pain
     Dosage: 110 MILLIGRAM, BID (0.5 DAY)
     Route: 048
  71. OXYCODONE [Concomitant]
     Active Substance: OXYCODONE
     Dosage: 110 MILLIGRAM, BID (0.5 DAY)(110 MG, BID (0.5 DAY, PAIN FROM METASTASES; DOSAGE FORM: 245))
     Route: 048
  72. OXYCODONE [Concomitant]
     Active Substance: OXYCODONE
     Dosage: 220 MILLIGRAM, QD (220 MILLIGRAM, QD (PAIN FROM METASTASES; DOSAGE FORM: 245)
     Route: 048
  73. OXYCODONE [Concomitant]
     Active Substance: OXYCODONE
     Dosage: 110 MILLIGRAM, BID  110 MG, 0.5 DAY, PAIN FROM METASTASES
     Route: 048
  74. OXYCODONE [Concomitant]
     Active Substance: OXYCODONE
     Dosage: UNK(2 OT, QD )
     Route: 065
  75. OXYCODONE [Concomitant]
     Active Substance: OXYCODONE
     Dosage: UNK(PUFF, BID)
     Route: 065
  76. OXYCODONE [Concomitant]
     Active Substance: OXYCODONE
     Dosage: 110 MILLIGRAM
     Route: 048
  77. OXYCODONE [Concomitant]
     Active Substance: OXYCODONE
     Dosage: 220 MILLIGRAM(110 MG, BID 0.5 PER DAY (PAIN FROM METASTASES)
     Route: 048
  78. OXYCODONE [Concomitant]
     Active Substance: OXYCODONE
     Dosage: 110 MILLIGRAM(110 MG, 0.5 PER DAY (PAIN FROM METASTASES)
     Route: 048
  79. OXYCODONE [Concomitant]
     Active Substance: OXYCODONE
     Dosage: 220 MILLIGRAM(220 MILLIGRAM, QD (PAIN FROM METASTASES)
     Route: 048
  80. OXYCODONE [Concomitant]
     Active Substance: OXYCODONE
     Dosage: 220 MILLIGRAM,110 MG, BID (0.5 DAY) (PAIN FROM METASTASES; DOSAGE FORM: 245)
     Route: 048
  81. OXYCODONE [Concomitant]
     Active Substance: OXYCODONE
     Dosage: 110 MILLIGRAM,110 MG, 0.5 DAY, PAIN FROM METASTASES
     Route: 048
  82. LACTULOSE [Concomitant]
     Active Substance: LACTULOSE
     Indication: Constipation
     Dosage: 10 MILLILITER, BID(10 ML, BID (0.5 DAY) PAIN FROM METASTASES)
     Route: 048
  83. LACTULOSE [Concomitant]
     Active Substance: LACTULOSE
     Indication: Prophylaxis
     Dosage: 20 MILLILITER, (10 ML, PER 0.5 DAY) 20 ML, 1/DAY (PROPHYLAXIS OF OPIOID INDUCED CONSTIPATION)
     Route: 048
  84. LACTULOSE [Concomitant]
     Active Substance: LACTULOSE
     Dosage: 10 MILLILITER, BID (0.5 DAY); PAIN FROM METASTASES
     Route: 048
  85. LACTULOSE [Concomitant]
     Active Substance: LACTULOSE
     Dosage: 10 MILLILITER
     Route: 048
  86. LACTULOSE [Concomitant]
     Active Substance: LACTULOSE
     Dosage: 20 MILLILITER(10 MILLILITER, BID PAIN FROM METASTASES)
     Route: 048
  87. LACTULOSE [Concomitant]
     Active Substance: LACTULOSE
     Dosage: 20 MILLILITER(10 ML, BID (0.5 DAY); PAIN FROM METASTASES)
     Route: 048
  88. LACTULOSE [Concomitant]
     Active Substance: LACTULOSE
     Dosage: 10 MILLILITER(10 ML, PER 0.5 DAY (PROPHYLAXIS OF OPIOID INDUCED CONSTIPATION))
     Route: 065
  89. OMEPRAZOLE [Concomitant]
     Active Substance: OMEPRAZOLE
     Indication: Product used for unknown indication
     Dosage: 40 MILLIGRAM, QD (PAIN FROM METASTASES)
     Route: 048
     Dates: start: 201710
  90. BECLOMETHASONE DIPROPIONATE [Concomitant]
     Active Substance: BECLOMETHASONE DIPROPIONATE
     Indication: Cancer pain
     Dosage: 2 PUFF, BID (0.5 DAY)
     Route: 055
  91. BECLOMETHASONE DIPROPIONATE [Concomitant]
     Active Substance: BECLOMETHASONE DIPROPIONATE
     Dosage: UNK(2 OT, QD (DOSE 2 PUFF))
     Route: 055
  92. BECLOMETHASONE DIPROPIONATE [Concomitant]
     Active Substance: BECLOMETHASONE DIPROPIONATE
     Dosage: UNK(DOSE 2 PUFF, 0.5 DAY)
     Route: 055
  93. BECLOMETHASONE DIPROPIONATE [Concomitant]
     Active Substance: BECLOMETHASONE DIPROPIONATE
     Dosage: 2 PUFF, BID PAIN FROM METASTASES
     Route: 055
  94. CALCIUM CARBONATE [Concomitant]
     Active Substance: CALCIUM CARBONATE
     Indication: Product used for unknown indication
     Dosage: 1 DOSAGE FORM, BID (1 DF,0.5)
     Route: 048
  95. CALCIUM CARBONATE [Concomitant]
     Active Substance: CALCIUM CARBONATE
     Dosage: 1 DOSAGE FORM, QD (PAIN FROM METASTASES)
     Route: 048
  96. CALCIUM CARBONATE [Concomitant]
     Active Substance: CALCIUM CARBONATE
     Dosage: 1 DOSAGE FORM, 1 DF,0.5
     Route: 065
  97. CALCIUM CARBONATE [Concomitant]
     Active Substance: CALCIUM CARBONATE
     Dosage: 1 DOSAGE FORM, BID, 1 DOSAGE FORM, BID; PAIN FROM METASTASES
     Route: 065
  98. CALCIUM CARBONATE [Concomitant]
     Active Substance: CALCIUM CARBONATE
     Dosage: 2 DOSAGE FORM(1 DOSAGE FORM, BID; PAIN FROM METASTASES)
     Route: 048
  99. CALCIUM CARBONATE [Concomitant]
     Active Substance: CALCIUM CARBONATE
     Dosage: 1 DOSAGE FORM, QD
     Route: 065
  100. CALCIUM CARBONATE [Concomitant]
     Active Substance: CALCIUM CARBONATE
     Dosage: 1 DOSAGE FORM(1 DF 0.5)
     Route: 048
  101. CLONAZEPAM [Concomitant]
     Active Substance: CLONAZEPAM
     Indication: Muscle spasms
     Dosage: 250 MILLIGRAM, QD (PAIN FROM METASTASES), START 2020
     Route: 048
  102. CLONAZEPAM [Concomitant]
     Active Substance: CLONAZEPAM
     Indication: Abdominal rigidity
  103. MORPHINE [Concomitant]
     Active Substance: MORPHINE
     Indication: Cancer pain
     Dosage: 5 MILLIGRAM, START 02-OCT-2018
     Route: 065
     Dates: end: 20181002
  104. MORPHINE [Concomitant]
     Active Substance: MORPHINE
     Indication: Diarrhoea
     Dosage: 5 MILLIGRAM(5 MILLIGRAM; PAIN FROM METASTASES)
     Route: 065
     Dates: start: 20181002, end: 20181002
  105. MORPHINE [Concomitant]
     Active Substance: MORPHINE
     Indication: Vomiting
  106. NITROFURANTOIN [Concomitant]
     Active Substance: NITROFURANTOIN
     Indication: Urinary tract infection
     Dosage: 50 MILLIGRAM, QID(50 MG,0.25), START 03-NOV-2018
     Route: 048
     Dates: end: 20181109
  107. NITROFURANTOIN [Concomitant]
     Active Substance: NITROFURANTOIN
     Dosage: 200 MILLIGRAM, QD (200 MG, 1/DAY (DOSAGE FORM: 245) (PAIN FROM METASTASES, START 03-NOV-2018
     Route: 048
     Dates: end: 20181109
  108. NITROFURANTOIN [Concomitant]
     Active Substance: NITROFURANTOIN
     Dosage: 50 MILLIGRAM
     Route: 048
     Dates: start: 20181103, end: 20181109
  109. NITROFURANTOIN [Concomitant]
     Active Substance: NITROFURANTOIN
     Dosage: 200 MILLIGRAM(50 MG; PAIN FROM METASTASES)
     Route: 048
     Dates: start: 20181103, end: 20181109
  110. NITROFURANTOIN [Concomitant]
     Active Substance: NITROFURANTOIN
     Dosage: 200 MILLIGRAM(50 MILLIGRAM (CUMULATIVE DOSE: 6608.333 MG))
     Route: 048
     Dates: start: 20181103, end: 20181109
  111. NITROFURANTOIN [Concomitant]
     Active Substance: NITROFURANTOIN
     Dosage: 50 MILLIGRAM(50 MG,0.25)
     Route: 048
     Dates: start: 20181103, end: 20181109
  112. NITROFURANTOIN [Concomitant]
     Active Substance: NITROFURANTOIN
     Dosage: 50 MILLIGRAM(50 MG, 0.25 PER DAY (PAIN FORM METASTASES))
     Route: 048
     Dates: start: 20181103, end: 20181109
  113. NITROFURANTOIN [Concomitant]
     Active Substance: NITROFURANTOIN
     Dosage: 200 MILLIGRAM(200 MG, QD PAIN FROM METASTASES (CUMULATIVE DOSE: 1400 MG))
     Route: 048
     Dates: start: 20181103, end: 20181109
  114. CHOLECALCIFEROL [Concomitant]
     Active Substance: CHOLECALCIFEROL
     Indication: Cancer pain
     Dosage: 1 DOSAGE FORM, BID (1 DF,0.5)
     Route: 048
  115. CHOLECALCIFEROL [Concomitant]
     Active Substance: CHOLECALCIFEROL
     Dosage: 1 DOSAGE FORM(1 DF,0.5)
     Route: 048
  116. CALCIUM\VITAMIN D [Concomitant]
     Active Substance: CALCIUM\VITAMIN D
     Dosage: 2 DOSAGE FORM (2 DF, 1/DAY (DOSAGE FORM: 245)
     Route: 048
  117. CALCIUM\VITAMIN D [Concomitant]
     Active Substance: CALCIUM\VITAMIN D
     Dosage: 1 DOSAGE FORM (F, PER 0.5 DAY)
     Route: 048
  118. BECLOMETHASONE DIPROPIONATE [Concomitant]
     Active Substance: BECLOMETHASONE DIPROPIONATE
     Indication: Cancer pain
     Dosage: DOSE 2 PUFF (0.5 DAY)PAIN FROM METASTASES
     Route: 055
  119. BECLOMETHASONE DIPROPIONATE [Concomitant]
     Active Substance: BECLOMETHASONE DIPROPIONATE
     Dosage: DOSE 2 PUFF; PAIN FROM METASTASES
     Route: 055
  120. BECLOMETHASONE DIPROPIONATE [Concomitant]
     Active Substance: BECLOMETHASONE DIPROPIONATE
     Dosage: 2 PUFF, BID; PAIN FROM METASTASES
     Route: 055
  121. BECLOMETHASONE DIPROPIONATE [Concomitant]
     Active Substance: BECLOMETHASONE DIPROPIONATE
     Dosage: 2 OT, QD (DOSE 2 PUFF)
     Route: 055
  122. BECLOMETHASONE DIPROPIONATE [Concomitant]
     Active Substance: BECLOMETHASONE DIPROPIONATE
     Dosage: 2 OT, QD (DOSE 2 PUFF)
     Route: 055
  123. BECLOMETHASONE DIPROPIONATE [Concomitant]
     Active Substance: BECLOMETHASONE DIPROPIONATE
     Dosage: 2 PUFF, BID PAIN FROM METASTASES
     Route: 055
  124. BECLOMETHASONE DIPROPIONATE [Concomitant]
     Active Substance: BECLOMETHASONE DIPROPIONATE
     Dosage: 2 OT, QD (DOSE 2 PUFF)
     Route: 055
  125. BECLOMETHASONE DIPROPIONATE [Concomitant]
     Active Substance: BECLOMETHASONE DIPROPIONATE
     Dosage: 2 PUFF, BID; PAIN FROM METASTASES
     Route: 055
  126. BECLOMETHASONE DIPROPIONATE [Concomitant]
     Active Substance: BECLOMETHASONE DIPROPIONATE
     Dosage: 2 DOSAGE FORM, QD PUFF, BID
     Route: 055
  127. BECLOMETHASONE DIPROPIONATE [Concomitant]
     Active Substance: BECLOMETHASONE DIPROPIONATE
     Dosage: UNK(2 PUFF)
     Route: 055
  128. BECLOMETHASONE DIPROPIONATE [Concomitant]
     Active Substance: BECLOMETHASONE DIPROPIONATE
     Dosage: UNK(0.5 DAY PUFF)
     Route: 055
  129. BECLOMETHASONE DIPROPIONATE [Concomitant]
     Active Substance: BECLOMETHASONE DIPROPIONATE
     Dosage: UNK, QD(2 OT QD)
     Route: 065
  130. BECLOMETHASONE DIPROPIONATE [Concomitant]
     Active Substance: BECLOMETHASONE DIPROPIONATE
     Dosage: 4 DOSAGE FORM, BID(PUFF, BID )
     Route: 065
  131. BECLOMETHASONE DIPROPIONATE [Concomitant]
     Active Substance: BECLOMETHASONE DIPROPIONATE
     Dosage: UNK, BID(2 PUFF BID)
     Route: 065
  132. ERYTHROMYCIN [Concomitant]
     Active Substance: ERYTHROMYCIN
     Dosage: 500 MILLIGRAM, QID (START 2020)
     Route: 048
     Dates: end: 202007
  133. QUETIAPINE [Concomitant]
     Active Substance: QUETIAPINE
     Indication: Depressed mood
     Dosage: 150 MILLIGRAM, QD, START 2020
     Route: 048
  134. QUETIAPINE [Concomitant]
     Active Substance: QUETIAPINE
     Dosage: 100 MILLIGRAM, QD,  START 2020
     Route: 048
  135. QUETIAPINE [Concomitant]
     Active Substance: QUETIAPINE
     Dosage: 100 MILLIGRAM, QD, 2020 PAIN FROM METASTASES
     Route: 048
  136. QUETIAPINE [Concomitant]
     Active Substance: QUETIAPINE
     Dosage: UNK, QD,  START 2020
     Route: 048
  137. QUETIAPINE [Concomitant]
     Active Substance: QUETIAPINE
     Dosage: UNK, QD,  PAIN FROM METASTASES
     Route: 048
  138. VANCOMYCIN [Concomitant]
     Active Substance: VANCOMYCIN
     Dosage: 1750 MILLIGRAM, START 12-JUN-2020
     Route: 042
     Dates: end: 202007
  139. VANCOMYCIN [Concomitant]
     Active Substance: VANCOMYCIN
     Dosage: 1750 MILLIGRAM, START 12-JUN-2020
     Route: 042
     Dates: end: 202006
  140. CALCIUM CARBONATE\CHOLECALCIFEROL [Concomitant]
     Active Substance: CALCIUM CARBONATE\CHOLECALCIFEROL
     Dosage: 2 DOSAGE FORM, QD (PAIN FROM METASTASES)
     Route: 048
  141. CALCIUM CARBONATE\CHOLECALCIFEROL [Concomitant]
     Active Substance: CALCIUM CARBONATE\CHOLECALCIFEROL
     Dosage: 1 DOSAGE FORM, BID (PAIN FROM METASTASES)
     Route: 048
  142. CALCIUM CARBONATE\CHOLECALCIFEROL [Concomitant]
     Active Substance: CALCIUM CARBONATE\CHOLECALCIFEROL
     Dosage: 1 DOSAGE FORM(0.5 DAY)
     Route: 048
  143. CALCIUM CARBONATE\CHOLECALCIFEROL [Concomitant]
     Active Substance: CALCIUM CARBONATE\CHOLECALCIFEROL
     Dosage: 2 DOSAGE FORM(2 DF, 1/DAY (DOSAGE FORM: 245) PAIN FROM METASTASES (1 DOSAGE FORM, BID) )
     Route: 048

REACTIONS (13)
  - Vascular device infection [Recovered/Resolved]
  - Device related infection [Recovered/Resolved]
  - Headache [Recovered/Resolved]
  - Post procedural diarrhoea [Recovered/Resolved]
  - Vomiting [Recovered/Resolved]
  - Dizziness [Recovered/Resolved]
  - Urinary tract infection [Recovered/Resolved]
  - Nausea [Recovered/Resolved]
  - Abdominal pain [Recovered/Resolved]
  - Back pain [Recovered/Resolved with Sequelae]
  - Diarrhoea [Recovered/Resolved]
  - Muscle spasms [Recovered/Resolved with Sequelae]
  - Off label use [Unknown]

NARRATIVE: CASE EVENT DATE: 20180904
